FAERS Safety Report 19401652 (Version 1)
Quarter: 2021Q2

REPORT INFORMATION
  Report Type: Spontaneous
  Country: US (occurrence: US)
  Receive Date: 20210611
  Receipt Date: 20210611
  Transmission Date: 20210717
  Serious: No
  Sender: FDA-Public Use
  Company Number: US-JNJFOC-20210612535

PATIENT
  Age: 9 Decade
  Sex: Male

DRUGS (1)
  1. ZYRTEC [Suspect]
     Active Substance: CETIRIZINE HYDROCHLORIDE
     Indication: BRONCHITIS CHRONIC
     Dosage: 1 TABLET ONCE A DAY EVERY DAY, PRODUCT START DATE: 3 TO 4 YEARS AGO
     Route: 065

REACTIONS (2)
  - Product use in unapproved indication [Unknown]
  - Pruritus [Not Recovered/Not Resolved]
